FAERS Safety Report 18944575 (Version 1)
Quarter: 2021Q1

REPORT INFORMATION
  Report Type: Spontaneous
  Country: KW (occurrence: KW)
  Receive Date: 20210226
  Receipt Date: 20210226
  Transmission Date: 20210420
  Serious: Yes (Other)
  Sender: FDA-Public Use
  Company Number: KW-OXFORD PHARMACEUTICALS, LLC-2107358

PATIENT
  Age: 6 Year
  Sex: Female

DRUGS (1)
  1. IMIPRAMINE HYDROCHLORIDE TABLETS, USP 10 MG, 25 MG, 50MG [Suspect]
     Active Substance: IMIPRAMINE HYDROCHLORIDE
     Indication: PARASOMNIA

REACTIONS (1)
  - Status epilepticus [Recovered/Resolved]
